FAERS Safety Report 15878162 (Version 1)
Quarter: 2019Q1

REPORT INFORMATION
  Report Type: Spontaneous
  Country: US (occurrence: US)
  Receive Date: 20190103
  Receipt Date: 20190103
  Transmission Date: 20190417
  Serious: No
  Sender: FDA-Public Use
  Company Number: None

PATIENT
  Age: 76 Year
  Sex: Female
  Weight: 63.5 kg

DRUGS (2)
  1. ERIBULIN 1.705MG [Suspect]
     Active Substance: ERIBULIN
     Indication: OVARIAN CANCER METASTATIC
     Dosage: ?          OTHER FREQUENCY:D1 AND D8 OF 21 DA;?
     Route: 042
     Dates: start: 20180725, end: 20181205
  2. DURVALUMAB 1,120MG [Suspect]
     Active Substance: DURVALUMAB
     Indication: OVARIAN CANCER METASTATIC
     Route: 042
     Dates: start: 20180725, end: 20181128

REACTIONS (6)
  - Nausea [None]
  - Small intestinal obstruction [None]
  - Abdominal pain [None]
  - Asthenia [None]
  - Vomiting [None]
  - Dehydration [None]

NARRATIVE: CASE EVENT DATE: 20181231
